FAERS Safety Report 7791714-4 (Version None)
Quarter: 2011Q4

REPORT INFORMATION
  Report Type: 
  Country: None (occurrence: None)
  Receive Date: 20111003
  Receipt Date: 20110922
  Transmission Date: 20120403
  Serious: Yes (Death, Other)
  Sender: FDA-Public Use
  Company Number: US-RB-032334-11

PATIENT
  Sex: Male

DRUGS (3)
  1. HEROIN [Suspect]
     Indication: SUBSTANCE USE
     Dosage: UNKNOWN ROUTE AND DOSAGE
  2. SUBOXONE [Suspect]
     Indication: DRUG DEPENDENCE
     Dosage: UNKNOWN DOSING SCHEDULE
     Route: 060
     Dates: start: 20110308, end: 20110101
  3. SUBOXONE [Suspect]
     Route: 065
     Dates: start: 20110824, end: 20110101

REACTIONS (1)
  - DEATH [None]
